FAERS Safety Report 8992748 (Version 1)
Quarter: 2013Q1

REPORT INFORMATION
  Report Type: Spontaneous
  Country: AU (occurrence: AU)
  Receive Date: 20130102
  Receipt Date: 20130102
  Transmission Date: 20140127
  Serious: Yes (Death)
  Sender: FDA-Public Use
  Company Number: AU-ROCHE-1174429

PATIENT
  Age: 71 Year
  Sex: Male

DRUGS (6)
  1. ACTILYSE [Suspect]
     Indication: ACUTE MYOCARDIAL INFARCTION
     Route: 042
     Dates: start: 19921007, end: 19921007
  2. STREPTOKINASE [Concomitant]
     Indication: THROMBOLYSIS
     Dosage: 1 MU
     Route: 042
     Dates: start: 19921007, end: 19921007
  3. HEPARIN SODIUM [Concomitant]
     Indication: THROMBOLYSIS
     Route: 042
     Dates: start: 19921007, end: 19921007
  4. GLYCEROL [Concomitant]
     Indication: THROMBOLYSIS
     Route: 042
     Dates: start: 19921007, end: 19921007
  5. ATROPINE [Concomitant]
     Indication: THROMBOLYSIS
     Route: 042
     Dates: start: 19921007, end: 19921007
  6. RANITIDINE [Concomitant]
     Indication: THROMBOLYSIS
     Route: 042
     Dates: start: 19921007, end: 19921007

REACTIONS (1)
  - Cerebrovascular disorder [Fatal]
